FAERS Safety Report 15136632 (Version 3)
Quarter: 2018Q3

REPORT INFORMATION
  Report Type: Spontaneous
  Country: US (occurrence: US)
  Receive Date: 20180712
  Receipt Date: 20180928
  Transmission Date: 20181010
  Serious: Yes (Death)
  Sender: FDA-Public Use
  Company Number: US-ACTELION-A-US2018-174858

PATIENT
  Age: 86 Year
  Sex: Male

DRUGS (5)
  1. DOK [Concomitant]
     Active Substance: DOCUSATE SODIUM
  2. RIVASTIGMINE. [Concomitant]
     Active Substance: RIVASTIGMINE
  3. LORAZEPAM. [Concomitant]
     Active Substance: LORAZEPAM
  4. OPSUMIT [Suspect]
     Active Substance: MACITENTAN
     Indication: PULMONARY ARTERIAL HYPERTENSION
     Dosage: 10 MG, UNK
     Route: 048
  5. MORPHINE [Concomitant]
     Active Substance: MORPHINE

REACTIONS (3)
  - Malaise [Not Recovered/Not Resolved]
  - Death [Fatal]
  - Drug dose omission [Not Recovered/Not Resolved]

NARRATIVE: CASE EVENT DATE: 201804
